FAERS Safety Report 9455816 (Version 1)
Quarter: 2013Q3

REPORT INFORMATION
  Report Type: Spontaneous
  Country: US (occurrence: US)
  Receive Date: 20130813
  Receipt Date: 20130813
  Transmission Date: 20140515
  Serious: No
  Sender: FDA-Public Use
  Company Number: US-TEVA-425804USA

PATIENT
  Age: 51 Year
  Sex: Male

DRUGS (1)
  1. NUVIGIL [Suspect]
     Route: 048

REACTIONS (1)
  - Rash [Unknown]
